FAERS Safety Report 4526358-0 (Version None)
Quarter: 2004Q4

REPORT INFORMATION
  Report Type: 
  Country: None (occurrence: None)
  Receive Date: 20041213
  Receipt Date: 20041206
  Transmission Date: 20050328
  Serious: Yes (Hospitalization)
  Sender: FDA-Public Use
  Company Number: HQWYE766906DEC04

PATIENT
  Age: 76 Year
  Sex: Female

DRUGS (12)
  1. CORDARONE [Suspect]
     Indication: ATRIAL FIBRILLATION
     Dosage: ORAL
     Route: 048
     Dates: end: 20040308
  2. ASPIRIN [Concomitant]
  3. ZESTRIL [Concomitant]
  4. LASILACTONE (FUROSEMIDE/SPIRONOLACTONE) [Concomitant]
  5. TOREM (TORASEMIDE) [Concomitant]
  6. ATORVASTATIN CALCIUM [Concomitant]
  7. INSULATARD NPH HUMAN [Concomitant]
  8. CALCIMAGON (CALCIUM CARBONATE/COLECALCIFEROL) [Concomitant]
  9. OXAZEPAM [Concomitant]
  10. ISOSORBIDE DINITRATE [Concomitant]
  11. LAXOBERON (SODIUM PICOSULFATE) [Concomitant]
  12. CELEBREX [Concomitant]

REACTIONS (6)
  - ATRIOVENTRICULAR BLOCK COMPLETE [None]
  - HAEMODIALYSIS [None]
  - HYPERKALAEMIA [None]
  - RENAL FAILURE [None]
  - RIGHT VENTRICULAR FAILURE [None]
  - THERAPY NON-RESPONDER [None]
